FAERS Safety Report 9288420 (Version 1)
Quarter: 2013Q2

REPORT INFORMATION
  Report Type: Spontaneous
  Country: IT (occurrence: None)
  Receive Date: 20130509
  Receipt Date: 20130509
  Transmission Date: 20140414
  Serious: Yes (Hospitalization)
  Sender: FDA-Public Use
  Company Number: 2013AP004979

PATIENT
  Age: 84 Year
  Sex: Male

DRUGS (5)
  1. LEVOFLOXACIN (LEVOFLOXACIN) [Suspect]
     Indication: BRONCHITIS
     Route: 048
     Dates: start: 20130201, end: 20130215
  2. LASIX [Concomitant]
  3. CARDIOASPIRIN [Concomitant]
  4. CONGESCOR [Concomitant]
  5. SIMVASTATINA [Concomitant]

REACTIONS (2)
  - Metabolic acidosis [None]
  - Renal failure acute [None]
